FAERS Safety Report 11787544 (Version 1)
Quarter: 2015Q4

REPORT INFORMATION
  Report Type: Spontaneous
  Country: US (occurrence: US)
  Receive Date: 20151130
  Receipt Date: 20151130
  Transmission Date: 20160305
  Serious: No
  Sender: FDA-Public Use
  Company Number: US-009507513-1511USA012428

PATIENT
  Age: 16 Year
  Sex: Female
  Weight: 63.49 kg

DRUGS (2)
  1. TRYPTANOL [Concomitant]
     Active Substance: AMITRIPTYLINE
  2. NEXPLANON [Suspect]
     Active Substance: ETONOGESTREL
     Indication: CONTRACEPTION
     Dosage: EVERY 3 YEARS, LEFT ARM
     Route: 059
     Dates: start: 20130925

REACTIONS (5)
  - Peripheral swelling [Unknown]
  - Weight increased [Unknown]
  - Depression [Unknown]
  - Pyrexia [Unknown]
  - Anxiety [Unknown]

NARRATIVE: CASE EVENT DATE: 201510
